FAERS Safety Report 24973569 (Version 1)
Quarter: 2025Q1

REPORT INFORMATION
  Report Type: Report from Study
  Country: CA (occurrence: CA)
  Receive Date: 20250217
  Receipt Date: 20250217
  Transmission Date: 20250409
  Serious: Yes (Hospitalization, Other)
  Sender: ABBVIE
  Company Number: CA-ABBVIE-6132106

PATIENT
  Sex: Male

DRUGS (2)
  1. RINVOQ [Suspect]
     Active Substance: UPADACITINIB
     Indication: Rheumatoid arthritis
     Dosage: FORM STRENGTH- 15 MG
     Route: 048
     Dates: start: 20200914, end: 202501
  2. RINVOQ [Suspect]
     Active Substance: UPADACITINIB
     Indication: Rheumatoid arthritis
     Dosage: FORMS STREGNTH 15MG
     Route: 048
     Dates: start: 2025

REACTIONS (2)
  - Cholecystectomy [Recovered/Resolved]
  - Post procedural infection [Recovered/Resolved]
